FAERS Safety Report 19892502 (Version 1)
Quarter: 2021Q3

REPORT INFORMATION
  Report Type: Spontaneous
  Country: US (occurrence: US)
  Receive Date: 20210929
  Receipt Date: 20210929
  Transmission Date: 20211014
  Serious: No
  Sender: FDA-Public Use
  Company Number: US-JNJFOC-20210938374

PATIENT
  Age: 54 Year
  Sex: Male
  Weight: 92.53 kg

DRUGS (5)
  1. COVID?19 VACCINE [Concomitant]
     Indication: PROPHYLAXIS
     Dosage: UNKNOWN DOSE, INJECTION IN RIGHT ARM
     Route: 065
     Dates: start: 20210319
  2. MELOXICAM. [Concomitant]
     Active Substance: MELOXICAM
     Indication: ARTHRALGIA
     Route: 065
  3. DICLOFENAC [Concomitant]
     Active Substance: DICLOFENAC
     Indication: ARTHRALGIA
     Route: 065
  4. COVID?19 VACCINE [Concomitant]
     Route: 065
     Dates: start: 20210409
  5. MOTRIN [Suspect]
     Active Substance: IBUPROFEN
     Indication: ARTHRALGIA
     Dosage: MOTRIN IB 200MG THREE TIMES A DAY
     Route: 065
     Dates: start: 202103

REACTIONS (1)
  - Therapeutic product effect incomplete [Unknown]

NARRATIVE: CASE EVENT DATE: 202103
